FAERS Safety Report 5906026-0 (Version None)
Quarter: 2008Q4

REPORT INFORMATION
  Report Type: 
  Country: None (occurrence: None)
  Receive Date: 20081002
  Receipt Date: 20080929
  Transmission Date: 20090506
  Serious: Yes (Death, Life-Threatening, Hospitalization)
  Sender: FDA-Public Use
  Company Number: DE-AVENTIS-200811791DE

PATIENT
  Age: 61 Year
  Sex: Female
  Weight: 55.5 kg

DRUGS (5)
  1. TAXOTERE [Suspect]
     Route: 042
     Dates: start: 20070518, end: 20070629
  2. RANITIDINE HCL [Concomitant]
     Indication: CHEMOTHERAPY
     Route: 042
  3. FENISTIL [Concomitant]
     Indication: CHEMOTHERAPY
     Route: 042
  4. TROPISETRON [Concomitant]
     Indication: CHEMOTHERAPY
     Route: 042
  5. DEXAMETHASONE TAB [Concomitant]
     Indication: CHEMOTHERAPY
     Route: 042

REACTIONS (5)
  - CHILLS [None]
  - GENERAL PHYSICAL HEALTH DETERIORATION [None]
  - PNEUMONITIS [None]
  - PULMONARY FIBROSIS [None]
  - PYREXIA [None]
